FAERS Safety Report 11936565 (Version 2)
Quarter: 2016Q1

REPORT INFORMATION
  Report Type: Report from Study
  Country: US (occurrence: US)
  Receive Date: 20160121
  Receipt Date: 20160219
  Transmission Date: 20160526
  Serious: Yes (Hospitalization)
  Sender: FDA-Public Use
  Company Number: US-PFIZER INC-2016030822

PATIENT
  Age: 52 Year
  Sex: Female

DRUGS (2)
  1. AMIODARONE HCL [Suspect]
     Active Substance: AMIODARONE HYDROCHLORIDE
     Dosage: UNK
     Route: 065
  2. RENVELA [Suspect]
     Active Substance: SEVELAMER CARBONATE
     Indication: HYPERPHOSPHATAEMIA
     Dosage: 4.8 G, DAILY (STRENGTH: 800 MG; 6 TABLETS PER DAY)
     Route: 048
     Dates: start: 20140128, end: 20150326

REACTIONS (7)
  - Pulmonary oedema [Unknown]
  - Dyspnoea [Unknown]
  - Pneumonia [Unknown]
  - General symptom [Unknown]
  - Toxicity to various agents [Unknown]
  - Chest pain [Unknown]
  - Constipation [Unknown]

NARRATIVE: CASE EVENT DATE: 20141121
